FAERS Safety Report 25373001 (Version 2)
Quarter: 2025Q2

REPORT INFORMATION
  Report Type: Spontaneous
  Country: US (occurrence: US)
  Receive Date: 20250529
  Receipt Date: 20250615
  Transmission Date: 20250716
  Serious: No
  Sender: SANOFI AVENTIS
  Company Number: US-SA-2025SA153213

PATIENT
  Age: 61 Year
  Sex: Male
  Weight: 100 kg

DRUGS (9)
  1. DUPIXENT [Suspect]
     Active Substance: DUPILUMAB
     Dosage: 300 MG, QOW
     Route: 058
  2. ATORVASTATIN CALCIUM [Concomitant]
     Active Substance: ATORVASTATIN CALCIUM
  3. WARFARIN SODIUM [Concomitant]
     Active Substance: WARFARIN SODIUM
  4. OXYCODONE [Concomitant]
     Active Substance: OXYCODONE
  5. ENOXAPARIN SODIUM [Concomitant]
     Active Substance: ENOXAPARIN SODIUM
  6. GABAPENTIN [Concomitant]
     Active Substance: GABAPENTIN
  7. DAPAGLIFLOZIN [Concomitant]
     Active Substance: DAPAGLIFLOZIN
  8. METHOCARBAMOL [Concomitant]
     Active Substance: METHOCARBAMOL
  9. ENTRESTO [Concomitant]
     Active Substance: SACUBITRIL\VALSARTAN

REACTIONS (1)
  - No adverse event [Unknown]
